FAERS Safety Report 12196760 (Version 3)
Quarter: 2016Q2

REPORT INFORMATION
  Report Type: Spontaneous
  Country: US (occurrence: US)
  Receive Date: 20160321
  Receipt Date: 20160413
  Transmission Date: 20160815
  Serious: Yes (Death, Hospitalization)
  Sender: FDA-Public Use
  Company Number: US-ACTELION-A-US2016-132871

PATIENT
  Age: 46 Year
  Sex: Male

DRUGS (7)
  1. NORVASC [Concomitant]
     Active Substance: AMLODIPINE BESYLATE
  2. OPSUMIT [Suspect]
     Active Substance: MACITENTAN
     Indication: PULMONARY HYPERTENSION
     Dosage: 10 MG, QD
     Route: 048
     Dates: start: 20160225
  3. ADCIRCA [Concomitant]
     Active Substance: TADALAFIL
  4. REMODULIN [Concomitant]
     Active Substance: TREPROSTINIL
  5. VENTAVIS [Suspect]
     Active Substance: ILOPROST
     Indication: PULMONARY HYPERTENSION
     Dosage: UNK
     Route: 055
     Dates: start: 20160122
  6. COUMADIN [Concomitant]
     Active Substance: WARFARIN SODIUM
  7. OXYGEN. [Concomitant]
     Active Substance: OXYGEN
     Dosage: 8 L, UNK

REACTIONS (15)
  - Weight increased [Unknown]
  - Oedema peripheral [Unknown]
  - Dysphonia [Unknown]
  - Oxygen consumption increased [Unknown]
  - Decreased appetite [Unknown]
  - Hypoxia [Fatal]
  - Nausea [Unknown]
  - Fluid overload [Unknown]
  - Cough [Recovering/Resolving]
  - Breath sounds abnormal [Unknown]
  - Insomnia [Unknown]
  - Blood sodium decreased [Unknown]
  - Lethargy [Unknown]
  - Diarrhoea [Unknown]
  - Asthenia [Unknown]
